FAERS Safety Report 16758822 (Version 1)
Quarter: 2019Q3

REPORT INFORMATION
  Report Type: Spontaneous
  Country: US (occurrence: US)
  Receive Date: 20190711
  Receipt Date: 20190711
  Transmission Date: 20191005
  Serious: No
  Sender: FDA-Public Use
  Company Number: None

PATIENT
  Age: 60 Year
  Sex: Male
  Weight: 76.9 kg

DRUGS (16)
  1. PROCHLORPERAZINE. [Concomitant]
     Active Substance: PROCHLORPERAZINE
  2. ACETAMINOPHEN. [Concomitant]
     Active Substance: ACETAMINOPHEN
  3. SODIUM PHOSPHATE [Concomitant]
     Active Substance: SODIUM PHOSPHATE
  4. BLINATUMOMAB [Suspect]
     Active Substance: BLINATUMOMAB
     Indication: ACUTE LYMPHOCYTIC LEUKAEMIA
     Route: 042
     Dates: start: 20190517, end: 20190606
  5. AMLODIPINE [Concomitant]
     Active Substance: AMLODIPINE BESYLATE
  6. METOPROLOL TARTRATE. [Concomitant]
     Active Substance: METOPROLOL TARTRATE
  7. ALLOPURINOL. [Concomitant]
     Active Substance: ALLOPURINOL
  8. LACTATED RINGERS SOLUTION [Concomitant]
     Active Substance: CALCIUM CHLORIDE\POTASSIUM CHLORIDE\SODIUM CHLORIDE\SODIUM LACTATE
  9. MICAFUNGIN. [Concomitant]
     Active Substance: MICAFUNGIN SODIUM
  10. ACYCLOVIR. [Concomitant]
     Active Substance: ACYCLOVIR
  11. INSULIN GLARGINE [Concomitant]
     Active Substance: INSULIN GLARGINE
  12. FAMOTIDINE. [Concomitant]
     Active Substance: FAMOTIDINE
  13. GUAIFENESIN-CODEINE [Concomitant]
  14. MEROPENEM. [Concomitant]
     Active Substance: MEROPENEM
  15. VANCOMYCIN [Concomitant]
     Active Substance: VANCOMYCIN
  16. INSULIN LISPRO [Concomitant]
     Active Substance: INSULIN LISPRO

REACTIONS (1)
  - Pyrexia [None]

NARRATIVE: CASE EVENT DATE: 20190606
